FAERS Safety Report 15882991 (Version 1)
Quarter: 2019Q1

REPORT INFORMATION
  Report Type: Spontaneous
  Country: None (occurrence: US)
  Receive Date: 20190129
  Receipt Date: 20190129
  Transmission Date: 20190417
  Serious: No
  Sender: FDA-Public Use
  Company Number: US-MEDAC PHARMA, INC.-2061856

PATIENT
  Age: 59 Year
  Sex: Female

DRUGS (4)
  1. RASUVO [Suspect]
     Active Substance: METHOTREXATE SODIUM
     Route: 051
  2. TREXALL [Suspect]
     Active Substance: METHOTREXATE SODIUM
  3. HUMIRA [Suspect]
     Active Substance: ADALIMUMAB
  4. RHEUMATREX DOSE PACK [Suspect]
     Active Substance: METHOTREXATE SODIUM

REACTIONS (1)
  - Drug ineffective [Unknown]
